FAERS Safety Report 4713686-9 (Version None)
Quarter: 2005Q3

REPORT INFORMATION
  Report Type: 
  Country: None (occurrence: None)
  Receive Date: 20050713
  Receipt Date: 20050707
  Transmission Date: 20060218
  Serious: Yes (Other)
  Sender: FDA-Public Use
  Company Number: 142146USA

PATIENT
  Age: 42 Year
  Sex: Female
  Weight: 58.514 kg

DRUGS (1)
  1. COPAXONE [Suspect]
     Indication: MULTIPLE SCLEROSIS
     Dates: start: 19990501, end: 20050217

REACTIONS (2)
  - HEPATITIS [None]
  - SERUM FERRITIN INCREASED [None]
